FAERS Safety Report 5570813-1 (Version None)
Quarter: 2007Q4

REPORT INFORMATION
  Report Type: 
  Country: None (occurrence: None)
  Receive Date: 20071130
  Receipt Date: 20070430
  Transmission Date: 20080405
  Serious: Yes (Disabling)
  Sender: FDA-Public Use
  Company Number: WAES 0705USA00017

PATIENT
  Sex: Female
  Weight: 99.3377 kg

DRUGS (20)
  1. FOSAMAX [Suspect]
     Indication: OSTEOPOROSIS
     Dosage: 5 MG/DAILY/PO ; 10 MG/PO ; 35 MG/WKY/PO
     Route: 048
     Dates: end: 20070617
  2. FOSAMAX [Suspect]
     Indication: OSTEOPOROSIS
     Dosage: 5 MG/DAILY/PO ; 10 MG/PO ; 35 MG/WKY/PO
     Route: 048
     Dates: start: 19980901
  3. FOSAMAX [Suspect]
     Indication: OSTEOPOROSIS
     Dosage: 5 MG/DAILY/PO ; 10 MG/PO ; 35 MG/WKY/PO
     Route: 048
     Dates: start: 19991216
  4. ADVAIR DISKUS 100/50 [Concomitant]
  5. CLIMARA [Concomitant]
  6. FLONASE [Concomitant]
  7. KLOR-CON [Concomitant]
  8. LEVAQUIN [Concomitant]
  9. LEVOXYL [Concomitant]
  10. MURO 128 OPHTHALMIC OINTMENT [Concomitant]
  11. NEURONTIN [Concomitant]
  12. PERIOGARD [Concomitant]
  13. RESTASIS [Concomitant]
  14. SPRIVA [Concomitant]
  15. VAGIFEM [Concomitant]
  16. ZOCOR [Concomitant]
  17. ZYRTEC [Concomitant]
  18. ALBUTEROL [Concomitant]
  19. FUROSEMIDE [Concomitant]
  20. PREDNISONE TAB [Concomitant]

REACTIONS (1)
  - OSTEONECROSIS [None]
